FAERS Safety Report 21312977 (Version 12)
Quarter: 2025Q2

REPORT INFORMATION
  Report Type: Spontaneous
  Country: CA (occurrence: CA)
  Receive Date: 20220909
  Receipt Date: 20250620
  Transmission Date: 20250717
  Serious: Yes (Life-Threatening, Hospitalization, Disabling, Other)
  Sender: ADVANZ PHARMA
  Company Number: CA-CONCORDIA PHARMACEUTICALS INC.-CO-PL-CA-2015-447

PATIENT

DRUGS (254)
  1. HYDROXYCHLOROQUINE SULFATE [Suspect]
     Active Substance: HYDROXYCHLOROQUINE SULFATE
     Indication: Rheumatoid arthritis
     Route: 048
  2. HYDROXYCHLOROQUINE SULFATE [Suspect]
     Active Substance: HYDROXYCHLOROQUINE SULFATE
     Route: 048
  3. HYDROXYCHLOROQUINE SULFATE [Suspect]
     Active Substance: HYDROXYCHLOROQUINE SULFATE
     Route: 048
  4. HYDROXYCHLOROQUINE SULFATE [Suspect]
     Active Substance: HYDROXYCHLOROQUINE SULFATE
     Route: 048
  5. HYDROXYCHLOROQUINE SULFATE [Suspect]
     Active Substance: HYDROXYCHLOROQUINE SULFATE
     Route: 065
  6. HYDROXYCHLOROQUINE SULFATE [Suspect]
     Active Substance: HYDROXYCHLOROQUINE SULFATE
     Route: 048
  7. HYDROXYCHLOROQUINE SULFATE [Suspect]
     Active Substance: HYDROXYCHLOROQUINE SULFATE
     Route: 065
  8. HYDROXYCHLOROQUINE SULFATE [Suspect]
     Active Substance: HYDROXYCHLOROQUINE SULFATE
     Route: 065
  9. HYDROXYCHLOROQUINE [Suspect]
     Active Substance: HYDROXYCHLOROQUINE
     Indication: Rheumatoid arthritis
     Route: 048
  10. HYDROXYCHLOROQUINE [Suspect]
     Active Substance: HYDROXYCHLOROQUINE
     Route: 048
  11. HYDROXYCHLOROQUINE [Suspect]
     Active Substance: HYDROXYCHLOROQUINE
     Route: 048
  12. HYDROXYCHLOROQUINE [Suspect]
     Active Substance: HYDROXYCHLOROQUINE
     Route: 048
  13. HYDROXYCHLOROQUINE [Suspect]
     Active Substance: HYDROXYCHLOROQUINE
     Route: 048
  14. HYDROXYCHLOROQUINE [Suspect]
     Active Substance: HYDROXYCHLOROQUINE
     Route: 048
  15. HYDROXYCHLOROQUINE [Suspect]
     Active Substance: HYDROXYCHLOROQUINE
     Route: 048
  16. HYDROXYCHLOROQUINE [Suspect]
     Active Substance: HYDROXYCHLOROQUINE
     Route: 048
  17. ERYTHROMYCIN [Suspect]
     Active Substance: ERYTHROMYCIN
     Indication: Product used for unknown indication
     Route: 065
  18. ERYTHROMYCIN [Suspect]
     Active Substance: ERYTHROMYCIN
     Route: 065
  19. ERYTHROMYCIN [Suspect]
     Active Substance: ERYTHROMYCIN
     Route: 065
  20. ERYTHROMYCIN [Suspect]
     Active Substance: ERYTHROMYCIN
     Route: 065
  21. ERYTHROMYCIN [Suspect]
     Active Substance: ERYTHROMYCIN
     Route: 065
  22. ADALIMUMAB [Suspect]
     Active Substance: ADALIMUMAB
     Indication: Rheumatoid arthritis
     Route: 058
  23. ADALIMUMAB [Suspect]
     Active Substance: ADALIMUMAB
     Route: 058
  24. ADALIMUMAB [Suspect]
     Active Substance: ADALIMUMAB
     Route: 058
  25. ADALIMUMAB [Suspect]
     Active Substance: ADALIMUMAB
     Route: 065
  26. ARAVA [Suspect]
     Active Substance: LEFLUNOMIDE
     Indication: Rheumatoid arthritis
     Route: 048
  27. ARAVA [Suspect]
     Active Substance: LEFLUNOMIDE
     Route: 048
  28. ARAVA [Suspect]
     Active Substance: LEFLUNOMIDE
     Route: 065
  29. ARAVA [Suspect]
     Active Substance: LEFLUNOMIDE
     Route: 048
  30. ARAVA [Suspect]
     Active Substance: LEFLUNOMIDE
     Route: 065
  31. ARAVA [Suspect]
     Active Substance: LEFLUNOMIDE
     Route: 065
  32. FLAGYL [Suspect]
     Active Substance: METRONIDAZOLE\METRONIDAZOLE HYDROCHLORIDE
     Indication: Product used for unknown indication
     Route: 065
  33. DEMEROL [Suspect]
     Active Substance: MEPERIDINE HYDROCHLORIDE
     Indication: Rheumatoid arthritis
     Route: 065
  34. DEMEROL [Suspect]
     Active Substance: MEPERIDINE HYDROCHLORIDE
     Route: 065
  35. DEMEROL [Suspect]
     Active Substance: MEPERIDINE HYDROCHLORIDE
     Route: 048
  36. DEMEROL [Suspect]
     Active Substance: MEPERIDINE HYDROCHLORIDE
     Route: 065
  37. ARTHROTEC [Suspect]
     Active Substance: DICLOFENAC SODIUM\MISOPROSTOL
     Indication: Rheumatoid arthritis
     Route: 065
  38. ARTHROTEC [Suspect]
     Active Substance: DICLOFENAC SODIUM\MISOPROSTOL
     Route: 048
  39. ARTHROTEC [Suspect]
     Active Substance: DICLOFENAC SODIUM\MISOPROSTOL
     Route: 048
  40. ARTHROTEC [Suspect]
     Active Substance: DICLOFENAC SODIUM\MISOPROSTOL
     Route: 065
  41. ARTHROTEC [Suspect]
     Active Substance: DICLOFENAC SODIUM\MISOPROSTOL
     Route: 048
  42. ARTHROTEC [Suspect]
     Active Substance: DICLOFENAC SODIUM\MISOPROSTOL
     Route: 048
  43. ARTHROTEC [Suspect]
     Active Substance: DICLOFENAC SODIUM\MISOPROSTOL
     Route: 065
  44. ARTHROTEC [Suspect]
     Active Substance: DICLOFENAC SODIUM\MISOPROSTOL
     Route: 016
  45. BISOPROLOL FUMARATE [Suspect]
     Active Substance: BISOPROLOL FUMARATE
     Indication: Product used for unknown indication
     Route: 065
  46. BISOPROLOL FUMARATE [Suspect]
     Active Substance: BISOPROLOL FUMARATE
     Route: 065
  47. BISOPROLOL FUMARATE [Suspect]
     Active Substance: BISOPROLOL FUMARATE
     Route: 065
  48. HUMIRA [Suspect]
     Active Substance: ADALIMUMAB
     Indication: Rheumatoid arthritis
     Route: 058
     Dates: start: 201503, end: 201505
  49. HUMIRA [Suspect]
     Active Substance: ADALIMUMAB
     Dosage: 40 MG, WEEKLY (SOLUTION SUBCUTANEOUS)
     Route: 058
  50. HUMIRA [Suspect]
     Active Substance: ADALIMUMAB
     Dosage: 40 MG, WEEKLY (SOLUTION SUBCUTANEOUS, CYCLICAL)
     Route: 058
  51. HUMIRA [Suspect]
     Active Substance: ADALIMUMAB
     Route: 058
  52. HUMIRA [Suspect]
     Active Substance: ADALIMUMAB
     Route: 058
  53. HUMIRA [Suspect]
     Active Substance: ADALIMUMAB
     Route: 058
  54. HUMIRA [Suspect]
     Active Substance: ADALIMUMAB
     Route: 058
  55. HUMIRA [Suspect]
     Active Substance: ADALIMUMAB
     Route: 058
  56. HUMIRA [Suspect]
     Active Substance: ADALIMUMAB
     Route: 058
  57. HUMIRA [Suspect]
     Active Substance: ADALIMUMAB
     Dosage: 40 MG, WEEKLY (CYCLICAL)
     Route: 058
  58. HUMIRA [Suspect]
     Active Substance: ADALIMUMAB
     Dosage: 40 MG
     Route: 058
  59. HUMIRA [Suspect]
     Active Substance: ADALIMUMAB
     Dosage: 40 MG
     Route: 058
  60. HUMIRA [Suspect]
     Active Substance: ADALIMUMAB
     Route: 058
  61. HUMIRA [Suspect]
     Active Substance: ADALIMUMAB
     Route: 058
  62. HUMIRA [Suspect]
     Active Substance: ADALIMUMAB
     Route: 058
  63. HUMIRA [Suspect]
     Active Substance: ADALIMUMAB
     Route: 058
  64. HUMIRA [Suspect]
     Active Substance: ADALIMUMAB
     Route: 058
  65. HUMIRA [Suspect]
     Active Substance: ADALIMUMAB
     Route: 058
  66. HUMIRA [Suspect]
     Active Substance: ADALIMUMAB
     Route: 058
  67. HUMIRA [Suspect]
     Active Substance: ADALIMUMAB
     Route: 058
  68. HUMIRA [Suspect]
     Active Substance: ADALIMUMAB
     Route: 058
  69. LEVOFLOXACIN [Suspect]
     Active Substance: LEVOFLOXACIN
     Indication: Product used for unknown indication
     Route: 065
  70. LEVOFLOXACIN [Suspect]
     Active Substance: LEVOFLOXACIN
  71. LEVOFLOXACIN [Suspect]
     Active Substance: LEVOFLOXACIN
     Route: 065
  72. LEVOFLOXACIN [Suspect]
     Active Substance: LEVOFLOXACIN
     Route: 065
  73. LEVOFLOXACIN [Suspect]
     Active Substance: LEVOFLOXACIN
     Route: 065
  74. LEVOFLOXACIN [Suspect]
     Active Substance: LEVOFLOXACIN
     Route: 065
  75. LYRICA [Suspect]
     Active Substance: PREGABALIN
     Indication: Product used for unknown indication
     Route: 065
  76. METHOTREXATE [Suspect]
     Active Substance: METHOTREXATE
     Indication: Rheumatoid arthritis
     Dosage: 20 MG, WEEKLY
     Route: 048
  77. METHOTREXATE [Suspect]
     Active Substance: METHOTREXATE
     Dosage: 20 MG, WEEKLY
     Route: 065
  78. METHOTREXATE [Suspect]
     Active Substance: METHOTREXATE
     Dosage: 1 DOSAGE FORM, WEEKLY
  79. METHOTREXATE [Suspect]
     Active Substance: METHOTREXATE
     Dosage: 20 MG, WEEKLY, (WITHOUT PRESERVATIVE), PRESERVATIVE (2 ML SINGLE-USE VIALS)
     Route: 013
  80. METHOTREXATE [Suspect]
     Active Substance: METHOTREXATE
     Dosage: 1 MG, WEEKLY (20 MG,QW)
     Route: 048
  81. METHOTREXATE [Suspect]
     Active Substance: METHOTREXATE
     Dosage: 1 DOSAGE FORM, WEEKLY
     Route: 048
  82. METHOTREXATE [Suspect]
     Active Substance: METHOTREXATE
     Route: 013
  83. METHOTREXATE [Suspect]
     Active Substance: METHOTREXATE
     Route: 065
  84. METHOTREXATE [Suspect]
     Active Substance: METHOTREXATE
     Route: 065
  85. METHOTREXATE [Suspect]
     Active Substance: METHOTREXATE
     Route: 048
  86. METHOTREXATE [Suspect]
     Active Substance: METHOTREXATE
     Dosage: 20 MG, WEEKLY
     Route: 048
  87. METHOTREXATE [Suspect]
     Active Substance: METHOTREXATE
     Dosage: 20 MG, WEEKLY
     Route: 048
  88. METHOTREXATE [Suspect]
     Active Substance: METHOTREXATE
     Dosage: 20 MG, WEEKLY
     Route: 048
  89. METHOTREXATE [Suspect]
     Active Substance: METHOTREXATE
     Route: 048
  90. METHOTREXATE [Suspect]
     Active Substance: METHOTREXATE
  91. NORFLOXACIN [Suspect]
     Active Substance: NORFLOXACIN
     Indication: Product used for unknown indication
     Route: 065
  92. NORFLOXACIN [Suspect]
     Active Substance: NORFLOXACIN
     Route: 065
  93. NORFLOXACIN [Suspect]
     Active Substance: NORFLOXACIN
     Route: 065
  94. NORFLOXACIN [Suspect]
     Active Substance: NORFLOXACIN
     Route: 048
  95. PREDNISONE [Suspect]
     Active Substance: PREDNISONE
     Indication: Rheumatoid arthritis
     Route: 065
  96. PREDNISONE [Suspect]
     Active Substance: PREDNISONE
     Route: 048
  97. CEFACLOR [Suspect]
     Active Substance: CEFACLOR
     Indication: Rheumatoid arthritis
     Route: 065
  98. CEFACLOR [Suspect]
     Active Substance: CEFACLOR
     Indication: Product used for unknown indication
  99. CEFACLOR [Suspect]
     Active Substance: CEFACLOR
     Route: 065
  100. CEFACLOR [Suspect]
     Active Substance: CEFACLOR
     Route: 065
  101. CELECOXIB [Suspect]
     Active Substance: CELECOXIB
     Indication: Rheumatoid arthritis
     Route: 048
  102. CELECOXIB [Suspect]
     Active Substance: CELECOXIB
     Route: 048
  103. CELECOXIB [Suspect]
     Active Substance: CELECOXIB
     Route: 048
  104. CELECOXIB [Suspect]
     Active Substance: CELECOXIB
     Route: 065
  105. CELECOXIB [Suspect]
     Active Substance: CELECOXIB
     Route: 065
  106. METRONIDAZOLE [Suspect]
     Active Substance: METRONIDAZOLE
     Indication: Rheumatoid arthritis
     Route: 042
  107. METRONIDAZOLE [Suspect]
     Active Substance: METRONIDAZOLE
     Indication: Product used for unknown indication
     Route: 042
  108. METRONIDAZOLE [Suspect]
     Active Substance: METRONIDAZOLE
     Route: 065
  109. METRONIDAZOLE [Suspect]
     Active Substance: METRONIDAZOLE
     Route: 065
  110. METRONIDAZOLE [Suspect]
     Active Substance: METRONIDAZOLE
     Route: 065
  111. METRONIDAZOLE [Suspect]
     Active Substance: METRONIDAZOLE
     Route: 042
  112. METRONIDAZOLE [Suspect]
     Active Substance: METRONIDAZOLE
     Route: 065
  113. METRONIDAZOLE [Suspect]
     Active Substance: METRONIDAZOLE
     Route: 065
  114. SULFASALAZINE [Suspect]
     Active Substance: SULFASALAZINE
     Indication: Rheumatoid arthritis
     Route: 065
  115. SULFASALAZINE [Suspect]
     Active Substance: SULFASALAZINE
     Route: 065
  116. SULFASALAZINE [Suspect]
     Active Substance: SULFASALAZINE
     Route: 065
  117. LEFLUNOMIDE [Suspect]
     Active Substance: LEFLUNOMIDE
     Indication: Rheumatoid arthritis
     Route: 065
  118. MISOPROSTOL [Suspect]
     Active Substance: MISOPROSTOL
     Indication: Rheumatoid arthritis
     Route: 065
  119. MISOPROSTOL [Suspect]
     Active Substance: MISOPROSTOL
     Route: 065
  120. PREGABALIN [Suspect]
     Active Substance: PREGABALIN
     Indication: Product used for unknown indication
     Route: 065
  121. PREGABALIN [Suspect]
     Active Substance: PREGABALIN
     Route: 065
  122. MEPERIDINE [Suspect]
     Active Substance: MEPERIDINE
     Indication: Product used for unknown indication
     Route: 065
  123. MEPERIDINE [Suspect]
     Active Substance: MEPERIDINE
     Route: 065
  124. MEPERIDINE [Suspect]
     Active Substance: MEPERIDINE
     Route: 065
  125. MEPERIDINE [Suspect]
     Active Substance: MEPERIDINE
     Route: 065
  126. MEPERIDINE [Suspect]
     Active Substance: MEPERIDINE
     Route: 065
  127. ERYTHROMYCIN ESTOLATE [Suspect]
     Active Substance: ERYTHROMYCIN ESTOLATE
     Indication: Product used for unknown indication
     Route: 065
  128. BISOPROLOL [Suspect]
     Active Substance: BISOPROLOL
     Indication: Product used for unknown indication
     Route: 065
  129. BISOPROLOL [Suspect]
     Active Substance: BISOPROLOL
     Route: 065
  130. BISOPROLOL [Suspect]
     Active Substance: BISOPROLOL
     Route: 065
  131. LEVOFLOXACIN HEMIHYDRATE [Suspect]
     Active Substance: LEVOFLOXACIN
     Indication: Product used for unknown indication
  132. LEVOFLOXACIN HEMIHYDRATE [Suspect]
     Active Substance: LEVOFLOXACIN
     Route: 065
  133. LEVOFLOXACIN HEMIHYDRATE [Suspect]
     Active Substance: LEVOFLOXACIN
     Route: 065
  134. LEFLUNOMIDE [Suspect]
     Active Substance: LEFLUNOMIDE
     Indication: Rheumatoid arthritis
     Route: 065
  135. LEFLUNOMIDE [Suspect]
     Active Substance: LEFLUNOMIDE
     Route: 048
  136. DICLOFENAC [Suspect]
     Active Substance: DICLOFENAC
     Indication: Rheumatoid arthritis
     Route: 065
  137. DICLOFENAC [Suspect]
     Active Substance: DICLOFENAC
     Route: 048
  138. LEVOFLOXACIN [Suspect]
     Active Substance: LEVOFLOXACIN
     Indication: Product used for unknown indication
  139. NORFLOXACIN [Suspect]
     Active Substance: NORFLOXACIN
     Indication: Product used for unknown indication
  140. CECLOR [Suspect]
     Active Substance: CEFACLOR
     Indication: Product used for unknown indication
     Route: 065
  141. CELEBREX [Suspect]
     Active Substance: CELECOXIB
     Indication: Rheumatoid arthritis
     Route: 048
  142. CELEBREX [Suspect]
     Active Substance: CELECOXIB
     Indication: Product used for unknown indication
     Route: 048
  143. CELEBREX [Suspect]
     Active Substance: CELECOXIB
     Route: 048
  144. CELEBREX [Suspect]
     Active Substance: CELECOXIB
     Route: 048
  145. CELEBREX [Suspect]
     Active Substance: CELECOXIB
     Route: 048
  146. CELEBREX [Suspect]
     Active Substance: CELECOXIB
     Route: 065
  147. NORFLOXACIN [Suspect]
     Active Substance: NORFLOXACIN
     Indication: Product used for unknown indication
     Route: 065
  148. NORFLOXACIN [Suspect]
     Active Substance: NORFLOXACIN
     Route: 065
  149. NORFLOXACIN [Suspect]
     Active Substance: NORFLOXACIN
     Route: 065
  150. NORFLOXACIN [Suspect]
     Active Substance: NORFLOXACIN
     Route: 065
  151. NORFLOXACIN [Suspect]
     Active Substance: NORFLOXACIN
     Route: 065
  152. NORFLOXACIN [Suspect]
     Active Substance: NORFLOXACIN
     Route: 065
  153. NORFLOXACIN [Suspect]
     Active Substance: NORFLOXACIN
     Route: 048
  154. PREDNISONE [Suspect]
     Active Substance: PREDNISONE
     Indication: Rheumatoid arthritis
     Route: 048
  155. SULFASALAZINE [Suspect]
     Active Substance: SULFASALAZINE
     Indication: Product used for unknown indication
     Route: 065
  156. SULFASALAZINE [Suspect]
     Active Substance: SULFASALAZINE
     Route: 065
  157. SULFASALAZINE [Suspect]
     Active Substance: SULFASALAZINE
     Route: 065
  158. FLAGYL [Suspect]
     Active Substance: METRONIDAZOLE\METRONIDAZOLE HYDROCHLORIDE
     Indication: Product used for unknown indication
     Route: 065
  159. MEPERIDINE HYDROCHLORIDE [Suspect]
     Active Substance: MEPERIDINE HYDROCHLORIDE
     Indication: Rheumatoid arthritis
     Route: 065
  160. MEPERIDINE HYDROCHLORIDE [Suspect]
     Active Substance: MEPERIDINE HYDROCHLORIDE
     Route: 065
  161. MEPERIDINE HYDROCHLORIDE [Suspect]
     Active Substance: MEPERIDINE HYDROCHLORIDE
     Route: 065
  162. DICLOFENAC SODIUM\MISOPROSTOL [Suspect]
     Active Substance: DICLOFENAC SODIUM\MISOPROSTOL
     Indication: Rheumatoid arthritis
     Route: 048
  163. DICLOFENAC SODIUM\MISOPROSTOL [Suspect]
     Active Substance: DICLOFENAC SODIUM\MISOPROSTOL
     Route: 065
  164. CEFACLOR [Suspect]
     Active Substance: CEFACLOR
     Indication: Rheumatoid arthritis
  165. CELECOXIB [Suspect]
     Active Substance: CELECOXIB
     Indication: Rheumatoid arthritis
     Route: 048
  166. CELECOXIB [Suspect]
     Active Substance: CELECOXIB
     Route: 048
  167. CELECOXIB [Suspect]
     Active Substance: CELECOXIB
     Route: 065
  168. ERYTHROMYCIN STEARATE [Suspect]
     Active Substance: ERYTHROMYCIN STEARATE
     Indication: Product used for unknown indication
  169. BISOPROLOL [Suspect]
     Active Substance: BISOPROLOL
     Indication: Product used for unknown indication
     Route: 065
  170. ERYTHROMYCIN [Suspect]
     Active Substance: ERYTHROMYCIN
     Indication: Product used for unknown indication
     Route: 065
  171. ERYTHROMYCIN [Suspect]
     Active Substance: ERYTHROMYCIN
     Indication: Product used for unknown indication
     Route: 065
  172. ERYTHROMYCIN [Suspect]
     Active Substance: ERYTHROMYCIN
     Route: 065
  173. ERYTHROMYCIN [Suspect]
     Active Substance: ERYTHROMYCIN
     Route: 065
  174. ERYTHROMYCIN [Suspect]
     Active Substance: ERYTHROMYCIN
     Route: 065
  175. ERYTHROMYCIN [Suspect]
     Active Substance: ERYTHROMYCIN
     Route: 065
  176. FLAGYL [Suspect]
     Active Substance: METRONIDAZOLE\METRONIDAZOLE HYDROCHLORIDE
     Indication: Product used for unknown indication
     Route: 065
  177. HYRIMOZ [Suspect]
     Active Substance: ADALIMUMAB-ADAZ
     Indication: Rheumatoid arthritis
     Route: 058
  178. METHOTREXATE [Suspect]
     Active Substance: METHOTREXATE
     Indication: Rheumatoid arthritis
     Route: 013
  179. METHOTREXATE [Suspect]
     Active Substance: METHOTREXATE
     Indication: Product used for unknown indication
     Route: 048
  180. METHOTREXATE [Suspect]
     Active Substance: METHOTREXATE
     Dosage: 20 MG, WEEKLY (1 EVERY 1 WEEK) (SOLUTION FOR INJECTION)
     Route: 048
  181. METHOTREXATE [Suspect]
     Active Substance: METHOTREXATE
     Route: 048
  182. METHOTREXATE [Suspect]
     Active Substance: METHOTREXATE
     Route: 013
  183. METHOTREXATE [Suspect]
     Active Substance: METHOTREXATE
     Dosage: 20 MG, WEEKLY (SOLUTION FOR INJECTION)
     Route: 065
  184. METHOTREXATE [Suspect]
     Active Substance: METHOTREXATE
     Dosage: 1 MG, WEEKLY (SOLUTION FOR INJECTION)
     Route: 065
  185. PLAQUENIL [Suspect]
     Active Substance: HYDROXYCHLOROQUINE SULFATE
     Indication: Product used for unknown indication
     Route: 065
  186. PLAQUENIL [Suspect]
     Active Substance: HYDROXYCHLOROQUINE SULFATE
     Route: 048
  187. PREDNISONE [Suspect]
     Active Substance: PREDNISONE
     Indication: Rheumatoid arthritis
     Route: 048
  188. PREDNISONE [Suspect]
     Active Substance: PREDNISONE
     Route: 065
  189. BISOPROLOL FUMARATE [Suspect]
     Active Substance: BISOPROLOL FUMARATE
     Indication: Product used for unknown indication
     Route: 065
  190. BISOPROLOL FUMARATE [Suspect]
     Active Substance: BISOPROLOL FUMARATE
     Indication: Product used for unknown indication
     Route: 065
  191. BISOPROLOL FUMARATE [Suspect]
     Active Substance: BISOPROLOL FUMARATE
     Route: 065
  192. BISOPROLOL FUMARATE [Suspect]
     Active Substance: BISOPROLOL FUMARATE
     Route: 065
  193. CELECOXIB [Suspect]
     Active Substance: CELECOXIB
     Indication: Product used for unknown indication
     Route: 065
  194. CELECOXIB [Suspect]
     Active Substance: CELECOXIB
     Indication: Product used for unknown indication
     Route: 048
  195. CELECOXIB [Suspect]
     Active Substance: CELECOXIB
     Route: 048
  196. CELECOXIB [Suspect]
     Active Substance: CELECOXIB
     Route: 048
  197. DICLOFENAC SODIUM [Suspect]
     Active Substance: DICLOFENAC SODIUM
     Indication: Rheumatoid arthritis
     Route: 048
  198. DICLOFENAC SODIUM [Suspect]
     Active Substance: DICLOFENAC SODIUM
     Indication: Rheumatoid arthritis
     Route: 065
  199. LEFLUNOMIDE [Suspect]
     Active Substance: LEFLUNOMIDE
     Indication: Rheumatoid arthritis
     Route: 065
  200. LEFLUNOMIDE [Suspect]
     Active Substance: LEFLUNOMIDE
     Indication: Rheumatoid arthritis
     Route: 065
  201. LEFLUNOMIDE [Suspect]
     Active Substance: LEFLUNOMIDE
     Route: 065
  202. LEFLUNOMIDE [Suspect]
     Active Substance: LEFLUNOMIDE
     Route: 065
  203. LEVOFLOXACIN [Suspect]
     Active Substance: LEVOFLOXACIN
     Indication: Product used for unknown indication
     Route: 065
  204. LEVOFLOXACIN [Suspect]
     Active Substance: LEVOFLOXACIN
     Indication: Product used for unknown indication
     Route: 065
  205. PREGABALIN [Suspect]
     Active Substance: PREGABALIN
     Indication: Product used for unknown indication
     Route: 065
  206. PREGABALIN [Suspect]
     Active Substance: PREGABALIN
     Route: 065
  207. PREGABALIN [Suspect]
     Active Substance: PREGABALIN
     Indication: Product used for unknown indication
     Route: 065
  208. DICLOFENAC SODIUM\MISOPROSTOL [Suspect]
     Active Substance: DICLOFENAC SODIUM\MISOPROSTOL
     Indication: Rheumatoid arthritis
     Route: 048
  209. DICLOFENAC SODIUM\MISOPROSTOL [Suspect]
     Active Substance: DICLOFENAC SODIUM\MISOPROSTOL
     Route: 065
  210. DICLOFENAC SODIUM\MISOPROSTOL [Suspect]
     Active Substance: DICLOFENAC SODIUM\MISOPROSTOL
     Route: 048
  211. DICLOFENAC SODIUM\MISOPROSTOL [Suspect]
     Active Substance: DICLOFENAC SODIUM\MISOPROSTOL
     Route: 048
  212. DICLOFENAC SODIUM\MISOPROSTOL [Suspect]
     Active Substance: DICLOFENAC SODIUM\MISOPROSTOL
     Route: 048
  213. HUMIRA [Suspect]
     Active Substance: ADALIMUMAB
     Indication: Rheumatoid arthritis
     Route: 058
  214. DICLOFENAC SODIUM\MISOPROSTOL [Suspect]
     Active Substance: DICLOFENAC SODIUM\MISOPROSTOL
     Indication: Rheumatoid arthritis
     Route: 065
  215. BISOPROLOL FUMARATE [Suspect]
     Active Substance: BISOPROLOL FUMARATE
     Indication: Product used for unknown indication
     Route: 065
  216. MEPERIDINE HYDROCHLORIDE [Suspect]
     Active Substance: MEPERIDINE HYDROCHLORIDE
     Indication: Rheumatoid arthritis
     Route: 042
  217. LEFLUNOMIDE [Suspect]
     Active Substance: LEFLUNOMIDE
     Indication: Product used for unknown indication
     Route: 048
  218. BISOPROLOL FUMARATE [Suspect]
     Active Substance: BISOPROLOL FUMARATE
     Indication: Product used for unknown indication
     Route: 065
  219. DICLOFENAC POTASSIUM [Suspect]
     Active Substance: DICLOFENAC POTASSIUM
     Indication: Product used for unknown indication
     Route: 048
  220. DICLOFENAC SODIUM [Suspect]
     Active Substance: DICLOFENAC SODIUM
     Indication: Rheumatoid arthritis
     Route: 065
  221. ERYTHROMYCIN ESTOLATE [Suspect]
     Active Substance: ERYTHROMYCIN ESTOLATE
     Indication: Product used for unknown indication
     Route: 065
  222. ERYTHROMYCIN ESTOLATE [Suspect]
     Active Substance: ERYTHROMYCIN ESTOLATE
     Route: 065
  223. LEFLUNOMIDE [Suspect]
     Active Substance: LEFLUNOMIDE
     Indication: Rheumatoid arthritis
     Route: 065
  224. LEFLUNOMIDE [Suspect]
     Active Substance: LEFLUNOMIDE
     Route: 065
  225. LEVOFLOXACIN [Suspect]
     Active Substance: LEVOFLOXACIN
     Indication: Product used for unknown indication
     Route: 065
  226. LEVOFLOXACIN [Suspect]
     Active Substance: LEVOFLOXACIN
  227. METRONIDAZOLE BENZOATE [Suspect]
     Active Substance: METRONIDAZOLE BENZOATE
     Indication: Rheumatoid arthritis
     Route: 065
  228. MISOPROSTOL [Suspect]
     Active Substance: MISOPROSTOL
     Indication: Product used for unknown indication
     Route: 065
  229. ACETAMINOPHEN [Suspect]
     Active Substance: ACETAMINOPHEN
     Indication: Product used for unknown indication
     Route: 065
  230. ACTEMRA [Suspect]
     Active Substance: TOCILIZUMAB
     Indication: Rheumatoid arthritis
     Route: 042
  231. CIMZIA [Suspect]
     Active Substance: CERTOLIZUMAB PEGOL
     Indication: Rheumatoid arthritis
     Route: 065
  232. CIMZIA [Suspect]
     Active Substance: CERTOLIZUMAB PEGOL
     Route: 058
  233. CORTISONE [Suspect]
     Active Substance: CORTISONE
     Indication: Product used for unknown indication
     Route: 058
  234. CORTISONE ACETATE [Suspect]
     Active Substance: CORTISONE ACETATE
     Indication: Rheumatoid arthritis
     Route: 061
  235. COSENTYX [Suspect]
     Active Substance: SECUKINUMAB
     Indication: Rheumatoid arthritis
     Route: 065
  236. COSENTYX [Suspect]
     Active Substance: SECUKINUMAB
     Indication: Psoriatic arthropathy
  237. COSENTYX [Suspect]
     Active Substance: SECUKINUMAB
     Indication: Rheumatoid arthritis
     Route: 065
  238. COSENTYX [Suspect]
     Active Substance: SECUKINUMAB
     Indication: Psoriatic arthropathy
  239. DICLOFENAC DIETHYLAMINE [Suspect]
     Active Substance: DICLOFENAC DIETHYLAMINE
     Indication: Product used for unknown indication
     Route: 065
  240. ETANERCEPT [Suspect]
     Active Substance: ETANERCEPT
     Indication: Rheumatoid arthritis
     Route: 058
  241. ETANERCEPT [Suspect]
     Active Substance: ETANERCEPT
     Route: 058
  242. FLUMETHASONE PIVALATE [Suspect]
     Active Substance: FLUMETHASONE PIVALATE
     Indication: Rheumatoid arthritis
     Route: 058
  243. FOLIC ACID\IRON\VITAMINS [Suspect]
     Active Substance: FOLIC ACID\IRON\VITAMINS
     Indication: Product used for unknown indication
     Route: 048
  244. FOSAMAX [Suspect]
     Active Substance: ALENDRONATE SODIUM
     Indication: Rheumatoid arthritis
     Route: 048
  245. LEVOFLOXACIN [Suspect]
     Active Substance: LEVOFLOXACIN
     Indication: Product used for unknown indication
     Route: 065
  246. LEVOFLOXACIN [Suspect]
     Active Substance: LEVOFLOXACIN
  247. GOLIMUMAB [Suspect]
     Active Substance: GOLIMUMAB
     Indication: Product used for unknown indication
     Route: 065
  248. GOLIMUMAB [Suspect]
     Active Substance: GOLIMUMAB
     Route: 058
  249. KEVZARA [Suspect]
     Active Substance: SARILUMAB
     Indication: Rheumatoid arthritis
     Route: 065
  250. CETIRIZINE HYDROCHLORIDE\PSEUDOEPHEDRINE HYDROCHLORIDE [Suspect]
     Active Substance: CETIRIZINE HYDROCHLORIDE\PSEUDOEPHEDRINE HYDROCHLORIDE
     Indication: Rheumatoid arthritis
     Route: 065
  251. RITUXIMAB [Suspect]
     Active Substance: RITUXIMAB
     Indication: Rheumatoid arthritis
     Route: 042
  252. ASCORBIC ACID\SODIUM ASCORBATE [Suspect]
     Active Substance: ASCORBIC ACID\SODIUM ASCORBATE
     Indication: Product used for unknown indication
  253. XELJANZ [Suspect]
     Active Substance: TOFACITINIB CITRATE
     Indication: Product used for unknown indication
     Route: 065
  254. XELJANZ [Suspect]
     Active Substance: TOFACITINIB CITRATE
     Indication: Product used for unknown indication
     Route: 048

REACTIONS (37)
  - Staphylococcal infection [Not Recovered/Not Resolved]
  - Lyme disease [Not Recovered/Not Resolved]
  - International normalised ratio fluctuation [Not Recovered/Not Resolved]
  - Red blood cell sedimentation rate increased [Not Recovered/Not Resolved]
  - Bloody discharge [Not Recovered/Not Resolved]
  - Infection [Not Recovered/Not Resolved]
  - Iron deficiency [Not Recovered/Not Resolved]
  - Hypoaesthesia [Not Recovered/Not Resolved]
  - Pain in extremity [Not Recovered/Not Resolved]
  - Secretion discharge [Not Recovered/Not Resolved]
  - Malaise [Not Recovered/Not Resolved]
  - Duodenal ulcer perforation [Not Recovered/Not Resolved]
  - Dyspnoea [Not Recovered/Not Resolved]
  - Helicobacter infection [Not Recovered/Not Resolved]
  - Liver injury [Not Recovered/Not Resolved]
  - Lower respiratory tract infection [Not Recovered/Not Resolved]
  - Lupus vulgaris [Not Recovered/Not Resolved]
  - Pericarditis [Not Recovered/Not Resolved]
  - Pemphigus [Not Recovered/Not Resolved]
  - Rheumatic fever [Not Recovered/Not Resolved]
  - Systemic lupus erythematosus [Not Recovered/Not Resolved]
  - Type 2 diabetes mellitus [Not Recovered/Not Resolved]
  - Ulcer haemorrhage [Not Recovered/Not Resolved]
  - Irritable bowel syndrome [Not Recovered/Not Resolved]
  - Wound [Not Recovered/Not Resolved]
  - Hypertension [Not Recovered/Not Resolved]
  - Drug hypersensitivity [Not Recovered/Not Resolved]
  - Platelet count increased [Not Recovered/Not Resolved]
  - Alopecia [Not Recovered/Not Resolved]
  - Abdominal pain [Not Recovered/Not Resolved]
  - Vomiting [Not Recovered/Not Resolved]
  - Nausea [Not Recovered/Not Resolved]
  - Dizziness [Not Recovered/Not Resolved]
  - Fatigue [Not Recovered/Not Resolved]
  - Drug intolerance [Not Recovered/Not Resolved]
  - Therapeutic product effect incomplete [Not Recovered/Not Resolved]
  - Drug ineffective [Not Recovered/Not Resolved]

NARRATIVE: CASE EVENT DATE: 20150527
